FAERS Safety Report 25093390 (Version 2)
Quarter: 2025Q2

REPORT INFORMATION
  Report Type: Spontaneous
  Country: IL (occurrence: IL)
  Receive Date: 20250319
  Receipt Date: 20250531
  Transmission Date: 20250716
  Serious: Yes (Life-Threatening)
  Sender: STEMLINE THERAPEUTICS
  Company Number: IL-STEMLINE THERAPEUTICS, INC-2025-STML-IL000910

PATIENT

DRUGS (1)
  1. ORSERDU [Suspect]
     Active Substance: ELACESTRANT
     Indication: Breast cancer metastatic
     Dosage: 345 MG, DAILY, DAY 1 TO DAY 30 OF A 30 DAY CYCLE
     Route: 048

REACTIONS (1)
  - Nausea [Not Recovered/Not Resolved]
